FAERS Safety Report 5726222-5 (Version None)
Quarter: 2008Q2

REPORT INFORMATION
  Report Type: 
  Country: None (occurrence: None)
  Receive Date: 20080502
  Receipt Date: 20080425
  Transmission Date: 20081010
  Serious: Yes (Other)
  Sender: FDA-Public Use
  Company Number: US-AVENTIS-200710476US

PATIENT
  Age: 53 Year
  Sex: Female

DRUGS (8)
  1. LANTUS [Suspect]
     Dates: start: 20010101, end: 20060701
  2. HUMALOG [Suspect]
     Dosage: DOSE: UNK
  3. AVALIDE [Concomitant]
     Dosage: DOSE: UNKNOWN
  4. LEVOXYL [Concomitant]
     Dosage: DOSE: UNKNOWN
  5. NORVASC [Concomitant]
     Dosage: DOSE: UNKNOWN
  6. ATENOLOL [Concomitant]
     Dosage: DOSE: UNKNOWN
  7. WELLBUTRIN [Concomitant]
     Dosage: DOSE: UNKNOWN
  8. LEVEMIR [Concomitant]
     Dosage: DOSE: UNKNOWN

REACTIONS (5)
  - BLOOD GLUCOSE DECREASED [None]
  - BLOOD GLUCOSE FLUCTUATION [None]
  - DAWN PHENOMENON [None]
  - DRUG INEFFECTIVE [None]
  - WEIGHT INCREASED [None]
